FAERS Safety Report 17938121 (Version 1)
Quarter: 2020Q2

REPORT INFORMATION
  Report Type: Spontaneous
  Country: US (occurrence: US)
  Receive Date: 20200624
  Receipt Date: 20200624
  Transmission Date: 20200714
  Serious: Yes (Death, Other)
  Sender: FDA-Public Use
  Company Number: US-ENDO PHARMACEUTICALS INC-2020-004345

PATIENT
  Age: 54 Year

DRUGS (4)
  1. LORAZEPAM. [Suspect]
     Active Substance: LORAZEPAM
     Indication: PRODUCT USED FOR UNKNOWN INDICATION
     Dosage: UNK UNKNOWN, UNKNOWN
     Route: 048
  2. MIRTAZAPINE. [Suspect]
     Active Substance: MIRTAZAPINE
     Indication: PRODUCT USED FOR UNKNOWN INDICATION
     Dosage: UNK UNKNOWN, UNKNOWN
     Route: 048
  3. MS CONTIN [Suspect]
     Active Substance: MORPHINE SULFATE
     Indication: PRODUCT USED FOR UNKNOWN INDICATION
     Dosage: UNK UNKNOWN, UNKNOWN
     Route: 048
  4. SALICYLATES NOS [Suspect]
     Active Substance: UNSPECIFIED INGREDIENT
     Indication: PRODUCT USED FOR UNKNOWN INDICATION
     Dosage: UNK UNKNOWN, UNKNOWN
     Route: 048

REACTIONS (12)
  - Renal failure [Unknown]
  - Bundle branch block right [Unknown]
  - Alanine aminotransferase increased [Unknown]
  - Tachycardia [Unknown]
  - Arrhythmia [Unknown]
  - Acidosis [Unknown]
  - Death [Fatal]
  - Pneumonitis [Unknown]
  - Respiratory arrest [Unknown]
  - Cardiac arrest [Unknown]
  - Aspartate aminotransferase increased [Unknown]
  - Hypotension [None]

NARRATIVE: CASE EVENT DATE: 201212
